FAERS Safety Report 12360393 (Version 2)
Quarter: 2016Q2

REPORT INFORMATION
  Report Type: Spontaneous
  Country: SE (occurrence: SE)
  Receive Date: 20160512
  Receipt Date: 20160518
  Transmission Date: 20160815
  Serious: Yes (Death)
  Sender: FDA-Public Use
  Company Number: SE-009507513-1602SWE003195

PATIENT
  Age: 53 Year
  Sex: Male

DRUGS (10)
  1. BETAPRED (BETAMETHASONE SODIUM PHOSPHATE) [Concomitant]
     Indication: METASTASES TO CENTRAL NERVOUS SYSTEM
     Dosage: AS NEEDED NOT OFTEN USED DUE TO TREATMENT WITH KEYTRUDA
  2. KEPPRA [Concomitant]
     Active Substance: LEVETIRACETAM
     Indication: ADVERSE EVENT
  3. KEPPRA [Concomitant]
     Active Substance: LEVETIRACETAM
     Indication: METASTASES TO CENTRAL NERVOUS SYSTEM
     Dosage: 1 DF, QD
  4. OXASCAND [Concomitant]
     Active Substance: OXAZEPAM
     Indication: ADVERSE EVENT
  5. KEYTRUDA [Suspect]
     Active Substance: PEMBROLIZUMAB
     Dosage: UNK
     Dates: start: 20150703, end: 20151208
  6. KEYTRUDA [Suspect]
     Active Substance: PEMBROLIZUMAB
     Dosage: UNK
     Dates: start: 20150703, end: 20151208
  7. BETAPRED (BETAMETHASONE SODIUM PHOSPHATE) [Concomitant]
     Indication: HEADACHE
  8. OXASCAND [Concomitant]
     Active Substance: OXAZEPAM
     Indication: METASTASES TO CENTRAL NERVOUS SYSTEM
  9. KEYTRUDA [Suspect]
     Active Substance: PEMBROLIZUMAB
     Dosage: UNK
     Dates: start: 20150703, end: 20151208
  10. OXASCAND [Concomitant]
     Active Substance: OXAZEPAM
     Indication: ANXIETY
     Dosage: 1 DF, FREQUENCY: AS NEEDED

REACTIONS (2)
  - Infection [Fatal]
  - Disease progression [Not Recovered/Not Resolved]

NARRATIVE: CASE EVENT DATE: 2015
